FAERS Safety Report 5242347-5 (Version None)
Quarter: 2007Q1

REPORT INFORMATION
  Report Type: 
  Country: None (occurrence: None)
  Receive Date: 20070216
  Receipt Date: 20070216
  Transmission Date: 20070707
  Serious: Yes (Hospitalization)
  Sender: FDA-Public Use
  Company Number: None

PATIENT
  Age: 84 Year
  Sex: Male

DRUGS (10)
  1. TERAZOSIN HCL [Suspect]
     Indication: BENIGN PROSTATIC HYPERPLASIA
     Dosage: 10 MG QHS
     Dates: start: 19981201
  2. OXYBUTYNIN [Suspect]
     Indication: BLADDER SPASM
     Dosage: 5 MG QD
     Dates: start: 20061011
  3. BISACODYL [Concomitant]
  4. CALCITRIOL [Concomitant]
  5. CALCIUM ACETATE [Concomitant]
  6. FOSINOPRIL SODIUM [Concomitant]
  7. GLIPIZIDE [Concomitant]
  8. ISOSORBIDE [Concomitant]
  9. OMEPRAZOLE [Concomitant]
  10. VALSARTAN [Concomitant]

REACTIONS (1)
  - SYNCOPE [None]
